FAERS Safety Report 7443505-1 (Version None)
Quarter: 2011Q2

REPORT INFORMATION
  Report Type: 
  Country: None (occurrence: None)
  Receive Date: 20110428
  Receipt Date: 20101214
  Transmission Date: 20111010
  Serious: Yes (Other)
  Sender: FDA-Public Use
  Company Number: US-BAYER-201016594NA

PATIENT
  Age: 40 Year
  Sex: Female
  Weight: 136.1 kg

DRUGS (11)
  1. IBUPROFEN [Concomitant]
  2. ANTIPROPULSIVES [Concomitant]
  3. NAPROXEN (ALEVE) [Concomitant]
  4. PREVACID [Concomitant]
  5. YASMIN [Suspect]
     Indication: CONTRACEPTION
     Route: 048
     Dates: start: 20070101, end: 20090108
  6. CELEBREX [Concomitant]
  7. YASMIN [Suspect]
     Indication: METRORRHAGIA
  8. EXCEDRIN (MIGRAINE) [Concomitant]
     Indication: MIGRAINE
  9. EXCEDRIN ASPIRIN FREE [Concomitant]
  10. DROSPIRENONE AND ETHINYL ESTRADIOL [Suspect]
     Indication: CONTRACEPTION
     Route: 048
     Dates: start: 20070101, end: 20090108
  11. DROSPIRENONE AND ETHINYL ESTRADIOL [Suspect]
     Indication: METRORRHAGIA

REACTIONS (7)
  - GALLBLADDER DISORDER [None]
  - ABDOMINAL PAIN UPPER [None]
  - DIARRHOEA [None]
  - DYSPEPSIA [None]
  - VOMITING [None]
  - FLATULENCE [None]
  - NAUSEA [None]
